FAERS Safety Report 23557933 (Version 1)
Quarter: 2024Q1

REPORT INFORMATION
  Report Type: Other
  Country: US (occurrence: None)
  Receive Date: 20240223
  Receipt Date: 20240223
  Transmission Date: 20240410
  Serious: Yes (Death)
  Sender: FDA-Public Use
  Company Number: US-ROCHE-3499927

PATIENT
  Age: 70 Year
  Sex: Female

DRUGS (2)
  1. LUCENTIS [Suspect]
     Active Substance: RANIBIZUMAB
     Indication: Diabetic retinopathy
     Route: 065
     Dates: start: 20170105, end: 20170623
  2. LUCENTIS [Suspect]
     Active Substance: RANIBIZUMAB
     Indication: Macular oedema

REACTIONS (1)
  - Death [Fatal]

NARRATIVE: CASE EVENT DATE: 20220901
